FAERS Safety Report 7626055-9 (Version None)
Quarter: 2011Q3

REPORT INFORMATION
  Report Type: 
  Country: None (occurrence: None)
  Receive Date: 20110721
  Receipt Date: 20110712
  Transmission Date: 20111222
  Serious: Yes (Other)
  Sender: FDA-Public Use
  Company Number: JP-AMGEN-US388233

PATIENT
  Age: 59 Year
  Sex: Female
  Weight: 52 kg

DRUGS (15)
  1. ZOMETA [Suspect]
     Indication: METASTASES TO BONE
     Route: 041
     Dates: start: 20070614, end: 20080417
  2. TYKERB [Concomitant]
     Indication: BREAST CANCER
     Dosage: 1000 MG, QD
     Route: 048
     Dates: start: 20100114
  3. LANDSEN [Concomitant]
     Indication: NEUROPATHY PERIPHERAL
     Dosage: 1 MG, QD
     Route: 048
     Dates: start: 20090226
  4. NOVORAPID [Concomitant]
     Indication: DIABETES MELLITUS
     Dosage: UNK UNK, BID
     Route: 058
     Dates: start: 20070407
  5. CALCICHEW D3 [Concomitant]
  6. LOXONIN [Concomitant]
     Indication: PAIN
     Dosage: 60 MG, UNK
     Route: 048
     Dates: start: 20100107, end: 20100121
  7. TRASTUZUMAB [Concomitant]
     Indication: BREAST CANCER
     Dosage: UNK
     Route: 041
     Dates: start: 20060609
  8. INSULIN ASPART [Concomitant]
     Indication: DIABETES MELLITUS
     Dosage: UNK UNK, BID
     Route: 058
     Dates: start: 20070407
  9. CALCICHEW D3 [Concomitant]
     Indication: MEDICAL DIET
     Dosage: UNK UNK, QD
     Route: 048
     Dates: start: 20070607, end: 20100121
  10. DENOSUMAB [Suspect]
     Indication: BREAST CANCER
     Dosage: UNK UNK, Q4WK
     Route: 058
     Dates: start: 20090730, end: 20100121
  11. HERCEPTIN [Concomitant]
     Indication: BREAST CANCER
     Dosage: UNK
     Route: 041
     Dates: start: 20070606
  12. VINORELBINE [Concomitant]
     Dosage: UNK
     Dates: start: 20090129, end: 20091126
  13. TEGRETOL [Concomitant]
     Indication: PAIN
     Dosage: 100 MG, UNK
     Route: 048
     Dates: start: 20100112, end: 20100114
  14. FLOMAX [Concomitant]
     Indication: OSTEONECROSIS
     Route: 048
     Dates: start: 20100107, end: 20100121
  15. LOXOPROFEN SODIUM [Concomitant]
     Dosage: UNK
     Dates: start: 20090711, end: 20090717

REACTIONS (1)
  - OSTEONECROSIS [None]
